FAERS Safety Report 7673833-6 (Version None)
Quarter: 2011Q3

REPORT INFORMATION
  Report Type: 
  Country: None (occurrence: None)
  Receive Date: 20110810
  Receipt Date: 20110809
  Transmission Date: 20111222
  Serious: Yes (Life-Threatening, Hospitalization, Other)
  Sender: FDA-Public Use
  Company Number: JP-ABBOTT-11P-087-0836721-00

PATIENT
  Sex: Male
  Weight: 78.9 kg

DRUGS (15)
  1. CEFAZOLIN SODIUM [Suspect]
     Indication: ERYSIPELAS
     Dates: start: 20110521, end: 20110522
  2. WARFARIN POTASSIUM [Concomitant]
     Indication: CORONARY ARTERY BYPASS
     Dosage: DAILY DOSE: 3.5MG
     Route: 048
  3. ALLOPURINOL [Concomitant]
  4. HUMIRA [Suspect]
     Indication: PSORIASIS
     Route: 058
     Dates: start: 20100823, end: 20100823
  5. HUMIRA [Suspect]
     Dates: start: 20100906, end: 20110425
  6. ASPIRIN [Concomitant]
     Indication: CORONARY ARTERY BYPASS
     Dosage: DAILY DOSE: 100MG
     Route: 048
  7. ASPIRIN [Concomitant]
     Indication: PLATELET AGGREGATION INHIBITION
  8. AMLODIPINE BESYLATE [Concomitant]
     Indication: HYPERTENSION
     Dosage: DAILY DOSE: 2.5MG
     Route: 048
  9. GLYBURIDE [Concomitant]
     Indication: DIABETES MELLITUS
     Dosage: DAILY DOSE: 5MG
     Route: 048
  10. WARFARIN POTASSIUM [Concomitant]
     Indication: THROMBOSIS PROPHYLAXIS
  11. ALLOPURINOL [Concomitant]
     Indication: HYPERURICAEMIA
     Route: 048
  12. METOPROLOL TARTRATE [Concomitant]
     Indication: HYPERTENSION
     Dosage: DAILY DOSE: 120MG
     Route: 048
  13. TELMISARTAN [Concomitant]
     Indication: HYPERTENSION
     Dosage: DAILY DOSE: 80MG
     Route: 048
  14. ATORVASTATIN CALCIUM [Concomitant]
     Indication: HYPERLIPIDAEMIA
     Route: 048
  15. VOGLIBOSE [Concomitant]
     Indication: DIABETES MELLITUS
     Route: 048

REACTIONS (10)
  - CONVULSION [None]
  - ERYSIPELAS [None]
  - LOSS OF CONSCIOUSNESS [None]
  - PNEUMONIA ASPIRATION [None]
  - RENAL IMPAIRMENT [None]
  - DRUG HYPERSENSITIVITY [None]
  - CARDIAC FAILURE CONGESTIVE [None]
  - GENERALISED ERYTHEMA [None]
  - DIARRHOEA [None]
  - RESPIRATORY DISTRESS [None]
